FAERS Safety Report 22002320 (Version 1)
Quarter: 2023Q1

REPORT INFORMATION
  Report Type: Spontaneous
  Country: DE (occurrence: DE)
  Receive Date: 20230217
  Receipt Date: 20230217
  Transmission Date: 20230417
  Serious: Yes (Hospitalization)
  Sender: FDA-Public Use
  Company Number: DE-drreddys-LIT/GER/23/0161204

PATIENT
  Age: 53 Year
  Sex: Female

DRUGS (6)
  1. SPIRONOLACTONE [Suspect]
     Active Substance: SPIRONOLACTONE
     Indication: Diuretic therapy
  2. IBANDRONIC ACID [Suspect]
     Active Substance: IBANDRONIC ACID
     Indication: Diuretic therapy
  3. IBANDRONIC ACID [Suspect]
     Active Substance: IBANDRONIC ACID
     Dosage: ANOTHER DOSE
  4. TORSEMIDE [Suspect]
     Active Substance: TORSEMIDE
     Indication: Diuretic therapy
  5. FRESH FROZEN PLASMA [Concomitant]
     Active Substance: HUMAN PLASMA
     Indication: Plasmapheresis
  6. ALBUMIN HUMAN [Concomitant]
     Active Substance: ALBUMIN HUMAN
     Indication: Plasmapheresis

REACTIONS (3)
  - Disease recurrence [Recovering/Resolving]
  - Hypercalcaemia [Recovering/Resolving]
  - Drug ineffective for unapproved indication [Unknown]
